FAERS Safety Report 21294287 (Version 1)
Quarter: 2022Q3

REPORT INFORMATION
  Report Type: Spontaneous
  Country: CA (occurrence: CA)
  Receive Date: 20220905
  Receipt Date: 20220905
  Transmission Date: 20221027
  Serious: Yes (Other)
  Sender: FDA-Public Use
  Company Number: CA-JNJFOC-20220901485

PATIENT
  Age: 45 Year
  Sex: Female
  Weight: 83 kg

DRUGS (1)
  1. REMICADE [Suspect]
     Active Substance: INFLIXIMAB
     Indication: Ankylosing spondylitis
     Route: 041

REACTIONS (3)
  - Musculoskeletal stiffness [Recovered/Resolved]
  - Gingivitis [Recovered/Resolved]
  - Off label use [Recovered/Resolved]
